FAERS Safety Report 6634356-6 (Version None)
Quarter: 2010Q1

REPORT INFORMATION
  Report Type: 
  Country: None (occurrence: None)
  Receive Date: 20100315
  Receipt Date: 20100304
  Transmission Date: 20100710
  Serious: Yes (Hospitalization)
  Sender: FDA-Public Use
  Company Number: GB-BAXTER-2010BH006318

PATIENT
  Age: 76 Year
  Sex: Male

DRUGS (3)
  1. GAMMAGARD LIQUID [Suspect]
     Indication: IMMUNODEFICIENCY COMMON VARIABLE
     Route: 042
     Dates: start: 20100122, end: 20100122
  2. GAMMAGARD LIQUID [Suspect]
     Indication: PRIMARY IMMUNODEFICIENCY SYNDROME
     Route: 042
     Dates: start: 20100122, end: 20100122
  3. ANTIBIOTICS [Concomitant]
     Dates: start: 20100101

REACTIONS (5)
  - CHILLS [None]
  - COUGH [None]
  - DYSKINESIA [None]
  - DYSPNOEA [None]
  - FEELING COLD [None]
